FAERS Safety Report 8590322-5 (Version None)
Quarter: 2012Q3

REPORT INFORMATION
  Report Type: 
  Country: None (occurrence: None)
  Receive Date: 20120813
  Receipt Date: 20120802
  Transmission Date: 20120928
  Serious: Yes (Hospitalization)
  Sender: FDA-Public Use
  Company Number: FR-GLAXOSMITHKLINE-B0822244A

PATIENT
  Sex: Female

DRUGS (22)
  1. TRIMEPRAZINE TARTRATE [Suspect]
     Indication: DEPRESSION
     Dosage: 10MG PER DAY
     Route: 048
  2. OXAZEPAM [Concomitant]
     Dosage: 100MG PER DAY
  3. DUPHASTON [Concomitant]
  4. FENOFIBRATE [Concomitant]
     Dosage: 300MG PER DAY
  5. ATARAX [Concomitant]
     Dosage: 150MG PER DAY
  6. RETINOL [Concomitant]
  7. SORIATANE [Suspect]
     Dosage: 10MG PER DAY
     Route: 048
     Dates: start: 20111130, end: 20120213
  8. EFFEXOR [Suspect]
     Indication: DEPRESSION
     Dosage: 75MG THREE TIMES PER DAY
     Route: 048
  9. CETIRIZINE [Concomitant]
     Dosage: 10MG PER DAY
  10. SORIATANE [Suspect]
     Indication: ICHTHYOSIS
     Dosage: 20MG PER DAY
     Route: 048
     Dates: end: 20111129
  11. NOZINAN [Suspect]
     Indication: DEPRESSION
     Dosage: 25MG PER DAY
     Route: 048
  12. SULFARLEM [Suspect]
  13. HAVLANE [Concomitant]
  14. PRIMPERAN TAB [Concomitant]
     Dosage: 30MG PER DAY
  15. SULFARLEM [Concomitant]
  16. TRANSIPEG [Concomitant]
     Dosage: 12G PER DAY
  17. NEXIUM [Concomitant]
     Dosage: 40MG PER DAY
  18. STRESAM [Concomitant]
  19. MORPHINE SULFATE [Concomitant]
     Dosage: 4CAP PER DAY
  20. MORPHINE SULFATE [Concomitant]
     Dosage: 100MG PER DAY
  21. ZOPICLONE [Concomitant]
     Dosage: 15MG PER DAY
  22. ARTIFICIAL TEARS [Concomitant]

REACTIONS (4)
  - MICROCYTIC ANAEMIA [None]
  - BLOOD ALKALINE PHOSPHATASE INCREASED [None]
  - HYPERTRIGLYCERIDAEMIA [None]
  - HYPERCHOLESTEROLAEMIA [None]
